FAERS Safety Report 4729375-0 (Version None)
Quarter: 2005Q3

REPORT INFORMATION
  Report Type: 
  Country: None (occurrence: None)
  Receive Date: 20050729
  Receipt Date: 20050721
  Transmission Date: 20060218
  Serious: Yes (Other)
  Sender: FDA-Public Use
  Company Number: PHBS2005ZA10552

PATIENT
  Sex: Female

DRUGS (4)
  1. TEGRETOL [Suspect]
     Indication: MOOD SWINGS
     Dosage: 400 MG, BID
  2. TEGRETOL [Suspect]
     Dosage: 400 MG/DAY
  3. PROZAC [Concomitant]
     Dosage: 80 MG, UNK
  4. CLONAZEPAM [Concomitant]

REACTIONS (6)
  - BALANCE DISORDER [None]
  - DIZZINESS [None]
  - FALL [None]
  - FEELING ABNORMAL [None]
  - RASH [None]
  - RIB FRACTURE [None]
